FAERS Safety Report 7536951-9 (Version None)
Quarter: 2011Q2

REPORT INFORMATION
  Report Type: 
  Country: None (occurrence: None)
  Receive Date: 20110609
  Receipt Date: 20110601
  Transmission Date: 20111010
  Serious: No
  Sender: FDA-Public Use
  Company Number: AT-ASTRAZENECA-2011SE30704

PATIENT
  Age: 39 Year
  Sex: Male
  Weight: 121.2 kg

DRUGS (14)
  1. SEROQUEL [Suspect]
     Route: 048
     Dates: start: 20110319, end: 20110319
  2. INDERAL [Concomitant]
  3. LAMICTAL [Concomitant]
     Dates: start: 20110201, end: 20110318
  4. LAMICTAL [Concomitant]
     Dates: start: 20110319, end: 20110330
  5. PARACODIN BITARTRATE TAB [Concomitant]
     Dates: start: 20110316, end: 20110320
  6. PARACODIN BITARTRATE TAB [Concomitant]
     Dates: start: 20110321, end: 20110321
  7. SEROQUEL [Suspect]
     Route: 048
     Dates: start: 20110409
  8. CYMBALTA [Suspect]
     Dates: start: 20110101, end: 20110318
  9. CANDESARTAN CILEXETIL [Concomitant]
  10. SEROQUEL [Suspect]
     Route: 048
     Dates: start: 20110323, end: 20110408
  11. SEROQUEL [Suspect]
     Indication: SEDATION
     Route: 048
     Dates: start: 20110301, end: 20110316
  12. LAMICTAL [Concomitant]
     Dates: start: 20110331
  13. SEROQUEL [Suspect]
     Dosage: 100 MG IN THE MORNING AND 600 MG IN THE EVENING
     Route: 048
     Dates: start: 20110317, end: 20110318
  14. SEROQUEL [Suspect]
     Route: 048
     Dates: start: 20110320, end: 20110322

REACTIONS (4)
  - DYSPNOEA [None]
  - HEPATIC ENZYME INCREASED [None]
  - THROAT TIGHTNESS [None]
  - DYSPHAGIA [None]
